FAERS Safety Report 9435809 (Version 3)
Quarter: 2013Q3

REPORT INFORMATION
  Report Type: Spontaneous
  Country: US (occurrence: US)
  Receive Date: 20130801
  Receipt Date: 20130927
  Transmission Date: 20140515
  Serious: No
  Sender: FDA-Public Use
  Company Number: US-TEVA-421823USA

PATIENT
  Sex: Male

DRUGS (1)
  1. QNASL [Suspect]
     Indication: HYPERSENSITIVITY
     Dosage: 80 MCG

REACTIONS (1)
  - Drug effect decreased [Unknown]
